FAERS Safety Report 5285298-2 (Version None)
Quarter: 2007Q2

REPORT INFORMATION
  Report Type: 
  Country: None (occurrence: None)
  Receive Date: 20070403
  Receipt Date: 20070330
  Transmission Date: 20071010
  Serious: Yes (Death, Hospitalization)
  Sender: FDA-Public Use
  Company Number: HT-BOEHRINGER INGELHEIM PHARMACEUTICALS, INC.-2007-BP-03749BP

PATIENT
  Sex: Female
  Weight: 2 kg

DRUGS (1)
  1. VIRAMUNE [Suspect]
     Indication: PROPHYLAXIS AGAINST HIV INFECTION
     Route: 048
     Dates: start: 20070227, end: 20070227

REACTIONS (2)
  - NECROTISING COLITIS [None]
  - SEPSIS [None]
